FAERS Safety Report 10379643 (Version 1)
Quarter: 2014Q3

REPORT INFORMATION
  Report Type: Spontaneous
  Country: DE (occurrence: None)
  Receive Date: 20140808
  Receipt Date: 20140808
  Transmission Date: 20150326
  Serious: Yes (Disabling, Other)
  Sender: FDA-Public Use
  Company Number: 2014-20105

PATIENT
  Age: 81 Year
  Sex: Male
  Weight: 82 kg

DRUGS (1)
  1. EYLEA [Suspect]
     Active Substance: AFLIBERCEPT
     Indication: MACULAR DEGENERATION
     Dates: start: 201402

REACTIONS (5)
  - Nasopharyngitis [None]
  - General physical condition abnormal [None]
  - Inappropriate schedule of drug administration [None]
  - Inflammation [None]
  - Tendon pain [None]

NARRATIVE: CASE EVENT DATE: 201402
